FAERS Safety Report 17966388 (Version 1)
Quarter: 2020Q2

REPORT INFORMATION
  Report Type: Spontaneous
  Country: US (occurrence: US)
  Receive Date: 20200630
  Receipt Date: 20200630
  Transmission Date: 20200714
  Serious: No
  Sender: FDA-Public Use
  Company Number: US-009507513-2006USA005837

PATIENT
  Age: 65 Year
  Sex: Female

DRUGS (4)
  1. COZAAR [Suspect]
     Active Substance: LOSARTAN POTASSIUM
     Indication: FIBROMUSCULAR DYSPLASIA
     Dosage: 2 (25MG) TABLETS TWICE A DAY
     Route: 048
     Dates: start: 201903, end: 20200504
  2. COZAAR [Suspect]
     Active Substance: LOSARTAN POTASSIUM
     Indication: FIBROMUSCULAR DYSPLASIA
     Dosage: 1 (50 MG) TABLET TWICE A DAY
     Route: 048
     Dates: start: 20200504
  3. AMILORIDE [Concomitant]
     Active Substance: AMILORIDE
     Dosage: 5 MG BID
  4. NIFEDIPINE. [Concomitant]
     Active Substance: NIFEDIPINE
     Dosage: 30 DAILY

REACTIONS (8)
  - Influenza like illness [Recovered/Resolved]
  - Vertigo [Not Recovered/Not Resolved]
  - Product use in unapproved indication [Unknown]
  - Pruritus [Recovered/Resolved]
  - Influenza like illness [Not Recovered/Not Resolved]
  - Nausea [Not Recovered/Not Resolved]
  - Headache [Not Recovered/Not Resolved]
  - Wrong technique in product usage process [Unknown]

NARRATIVE: CASE EVENT DATE: 201903
